FAERS Safety Report 24786153 (Version 1)
Quarter: 2024Q4

REPORT INFORMATION
  Report Type: Spontaneous
  Country: JP (occurrence: JP)
  Receive Date: 20241229
  Receipt Date: 20241229
  Transmission Date: 20250115
  Serious: Yes (Other)
  Sender: SANDOZ
  Company Number: JP-Sandoz Group AG-00003987

PATIENT
  Age: 17 Year
  Sex: Female

DRUGS (6)
  1. VALACYCLOVIR HYDROCHLORIDE [Suspect]
     Active Substance: VALACYCLOVIR HYDROCHLORIDE
     Indication: Herpes zoster
     Dosage: UNK
     Route: 048
     Dates: start: 20241126, end: 20241129
  2. BILASTINE [Concomitant]
     Active Substance: BILASTINE
     Indication: Product used for unknown indication
     Dosage: UNK
     Route: 048
     Dates: start: 20240501
  3. CALONAL [Concomitant]
     Active Substance: ACETAMINOPHEN
     Indication: Product used for unknown indication
     Dosage: UNK
     Route: 048
     Dates: start: 20241126, end: 20241126
  4. CALONAL [Concomitant]
     Active Substance: ACETAMINOPHEN
     Dosage: UNK
     Route: 048
     Dates: start: 20241129
  5. LOXOPROFEN SODIUM [Concomitant]
     Active Substance: LOXOPROFEN SODIUM
     Indication: Product used for unknown indication
     Dosage: UNK
     Route: 048
     Dates: start: 20241127, end: 20241129
  6. TEPRENONE [Concomitant]
     Active Substance: TEPRENONE
     Indication: Product used for unknown indication
     Dosage: UNK
     Route: 048
     Dates: start: 20241127, end: 20241129

REACTIONS (2)
  - Interstitial lung disease [Unknown]
  - Hyperamylasaemia [Unknown]

NARRATIVE: CASE EVENT DATE: 20241129
